FAERS Safety Report 9940651 (Version 2)
Quarter: 2014Q1

REPORT INFORMATION
  Report Type: Report from Study
  Country: AU (occurrence: AU)
  Receive Date: 20140303
  Receipt Date: 20140303
  Transmission Date: 20141002
  Serious: Yes (Other)
  Sender: FDA-Public Use
  Company Number: PHHY2012AU129853

PATIENT
  Age: 77 Year
  Sex: Female

DRUGS (12)
  1. ACLASTA [Suspect]
     Dosage: 5 MG, ANNUALLY
     Route: 042
     Dates: start: 20100909
  2. ACLASTA [Suspect]
     Dosage: 5 MG, ANNUALLY
     Route: 042
     Dates: start: 20111111
  3. ACLASTA [Suspect]
     Dosage: 5 MG, ANNUALLY
     Route: 042
     Dates: start: 20120921
  4. FOLIC ACID [Concomitant]
     Dosage: 5 MG, SIX DAYS A WEEK
  5. LIPITOR [Concomitant]
     Dosage: 40 MG, MANE (TOMORROW MORNING)
  6. MOBILIS [Concomitant]
     Dosage: 0.5 DF, DAILY PRN
  7. NEO B12 [Concomitant]
     Dosage: 1 MG, EVERY 03 MONTHS
     Route: 030
  8. NEXIUM//ESOMEPRAZOLE MAGNESIUM [Concomitant]
     Dosage: 40 MG, MANE (TOMORROW MORNING)
  9. NOTEN [Concomitant]
     Dosage: 0.5 DF, NOCTE (AT NIGHT)
  10. PLAVIX [Concomitant]
     Dosage: 75 MG, MANE
  11. TAMBOCOR [Concomitant]
     Dosage: 1 DF, BID
  12. ZANIDIP [Concomitant]
     Dosage: 10 MG, MANE

REACTIONS (11)
  - Skin cancer [Unknown]
  - Rheumatoid arthritis [Unknown]
  - Concomitant disease aggravated [Unknown]
  - Musculoskeletal pain [Not Recovered/Not Resolved]
  - Joint range of motion decreased [Not Recovered/Not Resolved]
  - Arthralgia [Not Recovered/Not Resolved]
  - Joint swelling [Not Recovered/Not Resolved]
  - Synovitis [Not Recovered/Not Resolved]
  - Atrial fibrillation [Unknown]
  - Gastrooesophageal reflux disease [Unknown]
  - Inappropriate schedule of drug administration [Unknown]
